FAERS Safety Report 9189386 (Version 2)
Quarter: 2013Q2

REPORT INFORMATION
  Report Type: Spontaneous
  Country: US (occurrence: US)
  Receive Date: 20130326
  Receipt Date: 20130422
  Transmission Date: 20140414
  Serious: Yes (Death, Life-Threatening, Hospitalization, Disabling, Other)
  Sender: FDA-Public Use
  Company Number: PHEH2013US006643

PATIENT
  Age: 80 Year
  Sex: Female
  Weight: 68.93 kg

DRUGS (6)
  1. AFINITOR [Suspect]
     Indication: BREAST CANCER METASTATIC
     Dosage: 10 MG, QD
     Route: 048
     Dates: start: 20121127, end: 20130215
  2. AROMASIN [Concomitant]
     Indication: BREAST CANCER METASTATIC
     Dosage: 25 MG, DAILY
     Route: 048
     Dates: start: 20121127, end: 20130215
  3. PANTOPRAZOLE [Concomitant]
     Indication: GASTROOESOPHAGEAL REFLUX DISEASE
     Dosage: 40 MG, DAILY
     Route: 048
     Dates: start: 20121127, end: 20130215
  4. LIPITOR [Concomitant]
     Indication: BLOOD CHOLESTEROL
     Dosage: 20 MG, DAILY
     Route: 048
     Dates: start: 20121127, end: 20130215
  5. CARDIZEM [Concomitant]
     Indication: CARDIAC DISORDER
     Dosage: 180 MG, DAILY
     Route: 048
     Dates: start: 20121127, end: 20130215
  6. ALTACE [Concomitant]
     Indication: CARDIAC DISORDER
     Dosage: 2.5 MG, DAILY
     Route: 048
     Dates: start: 20121127, end: 20130215

REACTIONS (4)
  - Dyspnoea [Fatal]
  - Oxygen saturation decreased [Not Recovered/Not Resolved]
  - Thrombocytopenia [Recovered/Resolved]
  - Pneumonitis [Unknown]
